FAERS Safety Report 19364100 (Version 1)
Quarter: 2021Q2

REPORT INFORMATION
  Report Type: Spontaneous
  Country: CN (occurrence: CN)
  Receive Date: 20210603
  Receipt Date: 20210603
  Transmission Date: 20210717
  Serious: Yes (Other)
  Sender: FDA-Public Use
  Company Number: CN-LUPIN PHARMACEUTICALS INC.-2021-08418

PATIENT
  Age: 43 Year
  Sex: Female

DRUGS (9)
  1. OSELTAMIVIR [Suspect]
     Active Substance: OSELTAMIVIR
     Indication: COVID-19
     Dosage: 75 MILLIGRAM, BID
     Route: 065
     Dates: start: 202002
  2. DASATINIB. [Concomitant]
     Active Substance: DASATINIB
     Indication: CHRONIC MYELOID LEUKAEMIA
     Dosage: 150 MILLIGRAM, QD
     Route: 065
  3. RIBAVIRIN. [Suspect]
     Active Substance: RIBAVIRIN
     Indication: COVID-19
     Dosage: 500 MILLIGRAM, BID EVERY 12 HOURS
     Route: 065
     Dates: start: 202002
  4. ARBIDOL [Suspect]
     Active Substance: UMIFENOVIR
     Indication: COVID-19
     Dosage: 200 MILLIGRAM, TID
     Route: 065
     Dates: start: 202002
  5. IMATINIB MESYLATE. [Suspect]
     Active Substance: IMATINIB MESYLATE
     Indication: MYELOFIBROSIS
  6. INTERFERON ALFA 2B [Suspect]
     Active Substance: INTERFERON ALFA-2B
     Indication: COVID-19
     Dosage: UNK (5 MILLIONS UNITS TWICE DAILY)
     Dates: start: 202002
  7. DASATINIB. [Concomitant]
     Active Substance: DASATINIB
     Indication: MYELOFIBROSIS
  8. IMATINIB MESYLATE. [Suspect]
     Active Substance: IMATINIB MESYLATE
     Indication: CHRONIC MYELOID LEUKAEMIA
     Dosage: 600 MILLIGRAM, QD
     Route: 065
     Dates: start: 201711
  9. CONVALESCENT PLASMA COVID?19 [Suspect]
     Active Substance: COVID-19 CONVALESCENT PLASMA
     Indication: COVID-19
     Dosage: 200 MILLILITER  RECEIVED ONE TRANSFUSION
     Route: 065
     Dates: start: 20200226

REACTIONS (2)
  - Off label use [Unknown]
  - Blood disorder [Unknown]

NARRATIVE: CASE EVENT DATE: 202002
